FAERS Safety Report 10197751 (Version 1)
Quarter: 2014Q2

REPORT INFORMATION
  Report Type: Spontaneous
  Country: US (occurrence: US)
  Receive Date: 20140527
  Receipt Date: 20140527
  Transmission Date: 20141212
  Serious: No
  Sender: FDA-Public Use
  Company Number: US-BAYER-2014-076892

PATIENT
  Age: 85 Year
  Sex: 0
  Weight: 61.23 kg

DRUGS (3)
  1. ALEVE CAPLET [Suspect]
     Indication: BLISTER
     Dosage: 1 DF, BID WITH FOOD
     Route: 048
     Dates: start: 2013
  2. BAYER GENUINE ASPIRIN ORIGINAL STRENGTH [Suspect]
     Dosage: UNK UNK, PRN
     Route: 048
  3. CITRACAL + D [CALCIUM CITRATE,ERGOCALCIFEROL] [Concomitant]

REACTIONS (3)
  - Incorrect drug administration duration [None]
  - Drug administered to patient of inappropriate age [None]
  - Off label use [None]
